FAERS Safety Report 8797220 (Version 2)
Quarter: 2015Q1

REPORT INFORMATION
  Report Type: Report from Study
  Country: US (occurrence: US)
  Receive Date: 20120919
  Receipt Date: 20150324
  Transmission Date: 20150721
  Serious: Yes (Death)
  Sender: FDA-Public Use
  Company Number: US-ROCHE-1125864

PATIENT
  Age: 44 Year
  Sex: Male

DRUGS (27)
  1. DEXAMETHASONE SODIUM PHOSPHATE. [Concomitant]
     Active Substance: DEXAMETHASONE SODIUM PHOSPHATE
     Route: 042
  2. EPOETIN ALFA [Concomitant]
     Active Substance: ERYTHROPOIETIN
     Dosage: 40000 UNIT NOT REPORTED
     Route: 042
  3. IRINOTECAN HYDROCHLORIDE. [Concomitant]
     Active Substance: IRINOTECAN HYDROCHLORIDE
     Route: 042
  4. SCOPOLAMINE [Concomitant]
     Active Substance: SCOPOLAMINE
  5. AVASTIN [Suspect]
     Active Substance: BEVACIZUMAB
     Indication: LUNG NEOPLASM MALIGNANT
     Route: 042
  6. RANITIDINE HCL [Concomitant]
     Active Substance: RANITIDINE HYDROCHLORIDE
     Route: 042
  7. PHENERGAN [Concomitant]
     Active Substance: PROMETHAZINE HYDROCHLORIDE
     Dosage: AS NEEDED
     Route: 065
  8. SOTALOL. [Concomitant]
     Active Substance: SOTALOL
     Route: 065
  9. DURAGESIC [Concomitant]
     Active Substance: FENTANYL
  10. PEGFILGRASTIM [Concomitant]
     Active Substance: PEGFILGRASTIM
     Dosage: 6 UNIT NOT REPORTED
     Route: 065
  11. NAVELBINE [Concomitant]
     Active Substance: VINORELBINE TARTRATE
  12. IRON DEXTRAN [Concomitant]
     Active Substance: IRON DEXTRAN
     Route: 042
  13. BARACLUDE [Concomitant]
     Active Substance: ENTECAVIR
     Route: 065
  14. ATIVAN [Concomitant]
     Active Substance: LORAZEPAM
  15. OXYCONTIN [Concomitant]
     Active Substance: OXYCODONE HYDROCHLORIDE
     Route: 065
  16. ANZEMET [Concomitant]
     Active Substance: DOLASETRON MESYLATE
  17. DEXTROSE. [Concomitant]
     Active Substance: DEXTROSE
     Dosage: 1000  UNIT NOT REPORTED
     Route: 065
  18. FENTANYL. [Concomitant]
     Active Substance: FENTANYL
     Route: 065
  19. VICOPROFEN [Concomitant]
     Active Substance: HYDROCODONE BITARTRATE\IBUPROFEN
     Dosage: 7.5/200  AS NEEDED
     Route: 065
  20. DIPHENHYDRAMINE HCL [Concomitant]
     Active Substance: DIPHENHYDRAMINE HYDROCHLORIDE
     Route: 042
  21. LORAZEPAM. [Concomitant]
     Active Substance: LORAZEPAM
     Route: 042
  22. PALONOSETRON HYDROCHLORIDE [Concomitant]
     Active Substance: PALONOSETRON HYDROCHLORIDE
     Dosage: 0.25  UNIT NOT REPORTED
     Route: 042
  23. PROMETHAZINE HCL [Concomitant]
     Active Substance: PROMETHAZINE HYDROCHLORIDE
     Route: 065
  24. IMODIUM [Concomitant]
     Active Substance: LOPERAMIDE HYDROCHLORIDE
  25. HYDROCORTISONE SODIUM SUCCINATE [Concomitant]
     Active Substance: HYDROCORTISONE SODIUM SUCCINATE
     Route: 042
  26. OXYCODONE [Concomitant]
     Active Substance: OXYCODONE
  27. PROCRIT [Concomitant]
     Active Substance: ERYTHROPOIETIN

REACTIONS (17)
  - Death [Fatal]
  - Dysphagia [Unknown]
  - Initial insomnia [Unknown]
  - Peripheral swelling [Unknown]
  - Vomiting [Unknown]
  - Malnutrition [Unknown]
  - Anxiety [Unknown]
  - Nausea [Unknown]
  - Pyrexia [Unknown]
  - Joint swelling [Unknown]
  - Pain [Unknown]
  - Diarrhoea [Unknown]
  - Constipation [Unknown]
  - Oedema [Unknown]
  - Disease progression [Unknown]
  - Anaemia [Recovering/Resolving]
  - Weight decreased [Unknown]

NARRATIVE: CASE EVENT DATE: 20080924
